FAERS Safety Report 5009395-1 (Version None)
Quarter: 2006Q2

REPORT INFORMATION
  Report Type: 
  Country: None (occurrence: None)
  Receive Date: 20060522
  Receipt Date: 20060509
  Transmission Date: 20061013
  Serious: Yes (Death)
  Sender: FDA-Public Use
  Company Number: 2005131344

PATIENT
  Age: 62 Year
  Sex: Male

DRUGS (1)
  1. CELEBREX [Suspect]
     Indication: ARTHRITIS
     Dosage: 200 MG, ORAL
     Route: 048
     Dates: start: 20000419, end: 20021212

REACTIONS (4)
  - ARTHRITIS [None]
  - CONDITION AGGRAVATED [None]
  - MYOCARDIAL INFARCTION [None]
  - SEXUAL DYSFUNCTION [None]
